FAERS Safety Report 9763705 (Version 1)
Quarter: 2013Q4

REPORT INFORMATION
  Report Type: Spontaneous
  Country: US (occurrence: US)
  Receive Date: 20131216
  Receipt Date: 20131216
  Transmission Date: 20140711
  Serious: No
  Sender: FDA-Public Use
  Company Number: US-BIOGENIDEC-2013BI113873

PATIENT
  Age: 58 Year
  Sex: Female

DRUGS (9)
  1. TECFIDERA [Suspect]
     Indication: MULTIPLE SCLEROSIS
     Route: 048
     Dates: start: 20131024, end: 20131031
  2. SYNTHROID [Concomitant]
  3. BENAZEPRIL [Concomitant]
  4. BACLOFEN [Concomitant]
  5. ESTRADIOL [Concomitant]
  6. CELEXA [Concomitant]
  7. IMIPRAMINE [Concomitant]
  8. VITAMIN D3 [Concomitant]
  9. VITAMIN C [Concomitant]

REACTIONS (4)
  - Dehydration [Recovered/Resolved]
  - Diarrhoea [Recovered/Resolved]
  - Nausea [Recovered/Resolved]
  - Retching [Recovered/Resolved]
